FAERS Safety Report 24269486 (Version 1)
Quarter: 2024Q3

REPORT INFORMATION
  Report Type: Spontaneous
  Country: US (occurrence: US)
  Receive Date: 20240830
  Receipt Date: 20240830
  Transmission Date: 20241016
  Serious: No
  Sender: ALEMBIC
  Company Number: US-ALEMBIC PHARMACUETICALS LIMITED-2024SCAL001238

PATIENT

DRUGS (1)
  1. VALSARTAN [Suspect]
     Active Substance: VALSARTAN
     Indication: Blood pressure abnormal
     Dosage: 80 MILLIGRAM, BID
     Route: 048
     Dates: start: 2024, end: 202408

REACTIONS (8)
  - Trichorrhexis [Not Recovered/Not Resolved]
  - Peripheral swelling [Recovered/Resolved]
  - Chills [Recovered/Resolved]
  - Influenza like illness [Recovered/Resolved]
  - Illness [Recovered/Resolved]
  - Alopecia [Not Recovered/Not Resolved]
  - Nausea [Recovered/Resolved]
  - Headache [Recovered/Resolved]

NARRATIVE: CASE EVENT DATE: 20240101
